FAERS Safety Report 23229330 (Version 1)
Quarter: 2023Q4

REPORT INFORMATION
  Report Type: Spontaneous
  Country: NL (occurrence: NL)
  Receive Date: 20231127
  Receipt Date: 20231127
  Transmission Date: 20240109
  Serious: Yes (Other)
  Sender: FDA-Public Use
  Company Number: NL-MITHRA PHARMACEUTICALS-01780

PATIENT
  Age: 18 Year
  Sex: Female

DRUGS (1)
  1. ETHINYL ESTRADIOL\LEVONORGESTREL [Suspect]
     Active Substance: ETHINYL ESTRADIOL\LEVONORGESTREL
     Indication: Product used for unknown indication
     Dosage: UNK
     Route: 065

REACTIONS (4)
  - Hereditary angioedema with C1 esterase inhibitor deficiency [Recovered/Resolved]
  - Laryngeal oedema [Unknown]
  - Throat tightness [Unknown]
  - Stridor [Unknown]
